FAERS Safety Report 9745136 (Version 1)
Quarter: 2013Q4

REPORT INFORMATION
  Report Type: Report from Study
  Country: IT (occurrence: IT)
  Receive Date: 20131211
  Receipt Date: 20131211
  Transmission Date: 20140711
  Serious: Yes (Hospitalization)
  Sender: FDA-Public Use
  Company Number: IT-CELGENEUS-083-C4047-13115574

PATIENT
  Sex: Male
  Weight: 84 kg

DRUGS (2)
  1. CC-4047 [Suspect]
     Indication: AMYLOIDOSIS
     Route: 048
     Dates: start: 20121215, end: 20130404
  2. DEXAMETHASONE [Suspect]
     Indication: AMYLOIDOSIS
     Route: 065
     Dates: start: 20121215, end: 20130401

REACTIONS (1)
  - Chronic obstructive pulmonary disease [Recovered/Resolved]
